FAERS Safety Report 8142218-0 (Version None)
Quarter: 2012Q1

REPORT INFORMATION
  Report Type: 
  Country: None (occurrence: None)
  Receive Date: 20120216
  Receipt Date: 20120202
  Transmission Date: 20120608
  Serious: Yes (Other)
  Sender: FDA-Public Use
  Company Number: PHHY2012DE001933

PATIENT
  Sex: Female
  Weight: 65 kg

DRUGS (5)
  1. EPIRUBICIN [Suspect]
     Indication: BREAST CANCER
     Route: 042
     Dates: start: 20101221, end: 20110708
  2. HERCEPTIN [Suspect]
     Indication: BREAST CANCER
     Route: 042
     Dates: end: 20111123
  3. CYCLOPHOSPHAMIDE [Suspect]
     Indication: BREAST CANCER
     Dates: start: 20101221, end: 20110708
  4. FEMARA [Suspect]
     Indication: BREAST CANCER
     Route: 048
     Dates: start: 20110712
  5. PACLITAXEL [Suspect]
     Indication: BREAST CANCER
     Route: 042
     Dates: start: 20101221, end: 20110708

REACTIONS (3)
  - EMOTIONAL DISTRESS [None]
  - CONDITION AGGRAVATED [None]
  - UVEITIS [None]
